FAERS Safety Report 7245688-5 (Version None)
Quarter: 2011Q1

REPORT INFORMATION
  Report Type: 
  Country: None (occurrence: None)
  Receive Date: 20110126
  Receipt Date: 20110119
  Transmission Date: 20110831
  Serious: Yes (Life-Threatening, Hospitalization, Other)
  Sender: FDA-Public Use
  Company Number: NL-ELI_LILLY_AND_COMPANY-NL201101004070

PATIENT
  Sex: Female

DRUGS (3)
  1. GEMCITABINE HYDROCHLORIDE [Suspect]
     Indication: NON-SMALL CELL LUNG CANCER STAGE III
     Dosage: 200 MG/M2, UNKNOWN
     Route: 042
     Dates: start: 20101207
  2. CETUXIMAB [Suspect]
     Indication: NON-SMALL CELL LUNG CANCER STAGE III
     Route: 042
     Dates: start: 20101223
  3. CARBOPLATIN [Suspect]
     Indication: NON-SMALL CELL LUNG CANCER STAGE III
     Dosage: 300 MG/M2, UNKNOWN
     Route: 042
     Dates: start: 20101207

REACTIONS (5)
  - CARDIOGENIC SHOCK [None]
  - ATRIAL FIBRILLATION [None]
  - PANCYTOPENIA [None]
  - MYOCARDIAL ISCHAEMIA [None]
  - PNEUMONIA [None]
